FAERS Safety Report 8572935-X (Version None)
Quarter: 2012Q2

REPORT INFORMATION
  Report Type: 
  Country: None (occurrence: None)
  Receive Date: 20120423
  Receipt Date: 20120423
  Transmission Date: 20120825
  Serious: Yes (Other)
  Sender: FDA-Public Use
  Company Number: PHEH2008US10247

PATIENT
  Age: 74 Year
  Sex: Male
  Weight: 94 kg

DRUGS (8)
  1. SAW PALMETTO (SERENOA REPENS) [Concomitant]
  2. NEUPOGEN [Concomitant]
  3. MULTIVITAMIN ^LAPPS^ (VITAMINS NOS) [Concomitant]
  4. PROCRIT	/00909301/ (ERYTHROPOIETIN) [Concomitant]
  5. EXJADE [Suspect]
     Indication: MYELODYSPLASTIC SYNDROME
     Dosage: 2000 MG, QD, ORAL ; 1000 MG, QD, ORAL
     Route: 048
     Dates: end: 20090112
  6. EXJADE [Suspect]
     Indication: MYELODYSPLASTIC SYNDROME
     Dosage: 2000 MG, QD, ORAL ; 1000 MG, QD, ORAL
     Route: 048
     Dates: start: 20081010, end: 20081101
  7. SYNTHROID [Concomitant]
  8. VITAMIN B6 [Concomitant]

REACTIONS (9)
  - ANTINUCLEAR ANTIBODY POSITIVE [None]
  - PLATELET COUNT DECREASED [None]
  - BLOOD CREATININE INCREASED [None]
  - URINE OUTPUT DECREASED [None]
  - HYPOACUSIS [None]
  - RENAL FAILURE [None]
  - FATIGUE [None]
  - BLOOD UREA INCREASED [None]
  - DIZZINESS [None]
